FAERS Safety Report 6730355-4 (Version None)
Quarter: 2010Q2

REPORT INFORMATION
  Report Type: 
  Country: None (occurrence: None)
  Receive Date: 20100518
  Receipt Date: 20100507
  Transmission Date: 20101027
  Serious: Yes (Other)
  Sender: FDA-Public Use
  Company Number: A0786280A

PATIENT
  Age: 48 Year
  Sex: Male

DRUGS (1)
  1. AVANDIA [Suspect]
     Indication: DIABETES MELLITUS
     Dosage: 2U TWICE PER DAY
     Dates: start: 20000101, end: 20070501

REACTIONS (3)
  - DECREASED ACTIVITY [None]
  - DYSPNOEA [None]
  - MYOCARDIAL INFARCTION [None]
